FAERS Safety Report 22196535 (Version 2)
Quarter: 2023Q2

REPORT INFORMATION
  Report Type: Spontaneous
  Country: IT (occurrence: None)
  Receive Date: 20230411
  Receipt Date: 20230419
  Transmission Date: 20230722
  Serious: Yes (Hospitalization)
  Sender: FDA-Public Use
  Company Number: None

PATIENT
  Age: 48 Year
  Sex: Male

DRUGS (5)
  1. CLARITHROMYCIN LACTOBIONATE [Suspect]
     Active Substance: CLARITHROMYCIN LACTOBIONATE
     Indication: Pneumonia
     Route: 042
     Dates: start: 20230117
  2. RAMIPRIL [Suspect]
     Active Substance: RAMIPRIL
     Indication: Hypertension
     Route: 048
     Dates: start: 20230114
  3. METOPROLOL TARTRATE [Suspect]
     Active Substance: METOPROLOL TARTRATE
     Indication: Hypertension
     Route: 048
     Dates: start: 20230114
  4. FUROSEMIDE S.A.L.F. [Concomitant]
     Indication: Diuretic therapy
     Route: 042
  5. EZETIMIBE [Concomitant]
     Active Substance: EZETIMIBE
     Indication: Hypercholesterolaemia
     Route: 048
     Dates: start: 20230114

REACTIONS (1)
  - Gamma-glutamyltransferase increased [Recovering/Resolving]

NARRATIVE: CASE EVENT DATE: 20230119
